FAERS Safety Report 6178896-5 (Version None)
Quarter: 2009Q2

REPORT INFORMATION
  Report Type: 
  Country: None (occurrence: None)
  Receive Date: 20090505
  Receipt Date: 20090422
  Transmission Date: 20091009
  Serious: Yes (Hospitalization, Other)
  Sender: FDA-Public Use
  Company Number: SE-PFIZER INC-2009202386

PATIENT

DRUGS (2)
  1. XANOR DEPOT [Suspect]
     Indication: ANXIETY
     Dosage: 1 MG, 1X/DAY
     Dates: start: 20090408
  2. LORAZEPAM [Concomitant]
     Indication: ANXIETY

REACTIONS (3)
  - EUPHORIC MOOD [None]
  - HEADACHE [None]
  - MYALGIA [None]
